FAERS Safety Report 17361002 (Version 5)
Quarter: 2020Q2

REPORT INFORMATION
  Report Type: Spontaneous
  Country: US (occurrence: US)
  Receive Date: 20200203
  Receipt Date: 20200518
  Transmission Date: 20200713
  Serious: No
  Sender: FDA-Public Use
  Company Number: US-SA-2020SA024897

PATIENT
  Age: 67 Year
  Sex: Male

DRUGS (2)
  1. DUPIXENT [Suspect]
     Active Substance: DUPILUMAB
     Indication: DERMATITIS ATOPIC
     Dosage: 300 MG, QOW
     Route: 058
     Dates: start: 20191115, end: 2019
  2. DUPIXENT [Suspect]
     Active Substance: DUPILUMAB
     Dosage: 600 MG
     Dates: start: 20191129, end: 20191129

REACTIONS (9)
  - Dermatitis allergic [Unknown]
  - Eye pruritus [Unknown]
  - Injection site rash [Unknown]
  - Conjunctivitis [Unknown]
  - Rash [Unknown]
  - Pain [Recovering/Resolving]
  - Nausea [Recovering/Resolving]
  - Eyelid rash [Unknown]
  - Product dose omission [Unknown]

NARRATIVE: CASE EVENT DATE: 202002
